FAERS Safety Report 8294740-4 (Version None)
Quarter: 2012Q2

REPORT INFORMATION
  Report Type: 
  Country: None (occurrence: None)
  Receive Date: 20120418
  Receipt Date: 20120411
  Transmission Date: 20120825
  Serious: Yes (Other)
  Sender: FDA-Public Use
  Company Number: US-JNJFOC-20120406189

PATIENT
  Age: 7 Month
  Sex: Female

DRUGS (1)
  1. NEOSPORIN ECZEMA ESSENTIALS DAILY MOISTURIZING CREAM [Suspect]
     Indication: ECZEMA
     Dosage: DIME-SIZED AMOUNT
     Route: 061
     Dates: start: 20120201, end: 20120101

REACTIONS (1)
  - ECZEMA [None]
